FAERS Safety Report 8241445 (Version 9)
Quarter: 2013Q1

REPORT INFORMATION
  Report Type: Spontaneous
  Country: US (occurrence: US)
  Receive Date: 20111111
  Receipt Date: 20130213
  Transmission Date: 20140127
  Serious: Yes (Death, Life-Threatening, Hospitalization, Other)
  Sender: FDA-Public Use
  Company Number: US-ELI_LILLY_AND_COMPANY-US201111001836

PATIENT
  Age: 88 Year
  Sex: Female
  Weight: 44 kg

DRUGS (25)
  1. FORTEO [Suspect]
     Indication: OSTEOPOROSIS
     Dosage: 20 UG, QD
     Route: 058
     Dates: start: 20110317
  2. FORTEO [Suspect]
     Dosage: 20 UG, UNK
     Dates: start: 20110928
  3. ADVAIR [Concomitant]
     Dosage: UNK, BID
  4. CRESTOR [Concomitant]
     Dosage: 10 MG, QD
     Route: 048
  5. WARFARIN [Concomitant]
  6. FUROSEMIDE [Concomitant]
     Dosage: 20 MG, QD
     Route: 048
  7. NEXIUM [Concomitant]
  8. ALBUTEROL [Concomitant]
  9. ZOLOFT [Concomitant]
     Dosage: 50 MG, QD
     Route: 048
  10. LISINOPRIL [Concomitant]
     Dosage: 5 MG, QD
     Route: 048
  11. VERAPAMIL [Concomitant]
     Dosage: 240 MG, QD
     Route: 048
  12. ASPIRIN [Concomitant]
     Dosage: 81 MG, QD
     Route: 048
  13. CALCIUM +D3 [Concomitant]
     Dosage: UNK, BID
     Route: 048
  14. DIGOXIN [Concomitant]
     Dosage: 125 UG, QD
     Route: 048
  15. FISH OIL [Concomitant]
     Dosage: 1000 MG, QD
     Route: 048
  16. KLOR-CON M20 [Concomitant]
     Dosage: 20 MEQ, BID
  17. MULTIVITAMIN [Concomitant]
     Dosage: UNK, QD
     Route: 048
  18. OMEPRAZOLE [Concomitant]
     Dosage: 40 MG, QD
     Route: 048
  19. PROAIR HFA [Concomitant]
     Indication: DYSPNOEA
     Dosage: UNK, PRN
     Route: 055
  20. SLOW FE [Concomitant]
     Dosage: 160 MG, OTHER
     Route: 048
  21. SPIRIVA HANDIHALER [Concomitant]
     Dosage: 18 U, QD
     Route: 055
  22. VITAMIN C [Concomitant]
     Dosage: 1000 MG, QD
     Route: 048
  23. ACE INHIBITORS [Concomitant]
     Dosage: UNK
  24. HMG COA REDUCTASE INHIBITORS [Concomitant]
     Dosage: UNK
  25. DIURETICS [Concomitant]
     Dosage: UNK

REACTIONS (13)
  - Cardiac failure [Fatal]
  - Chronic obstructive pulmonary disease [Fatal]
  - Acute respiratory failure [Recovered/Resolved]
  - Asthma [Unknown]
  - Clostridium difficile colitis [Recovered/Resolved]
  - Urinary retention [Unknown]
  - Dehydration [Unknown]
  - Atrial fibrillation [Recovered/Resolved]
  - Cardiomyopathy [Recovering/Resolving]
  - Chronic obstructive pulmonary disease [Recovered/Resolved]
  - Aspiration [Recovered/Resolved]
  - Dysphagia [Recovered/Resolved]
  - Dyspnoea [Recovered/Resolved]
